FAERS Safety Report 7874635-8 (Version None)
Quarter: 2011Q4

REPORT INFORMATION
  Report Type: 
  Country: None (occurrence: None)
  Receive Date: 20111031
  Receipt Date: 20111029
  Transmission Date: 20120403
  Serious: Yes (Other)
  Sender: FDA-Public Use
  Company Number: US-PFIZER INC-2011264815

PATIENT
  Sex: Male
  Weight: 86.168 kg

DRUGS (3)
  1. CHANTIX [Suspect]
     Dosage: 1 MG, 2X/DAY
     Route: 048
     Dates: start: 20110901
  2. CHANTIX [Suspect]
     Indication: SMOKING CESSATION THERAPY
     Dosage: 0.5 MG, DAILY
     Route: 048
     Dates: start: 20110901, end: 20110901
  3. MOTRIN [Concomitant]
     Indication: BACK PAIN
     Dosage: 800 MG, AS NEEDED
     Route: 048

REACTIONS (6)
  - ERYTHEMA [None]
  - SWELLING FACE [None]
  - ABNORMAL DREAMS [None]
  - THINKING ABNORMAL [None]
  - OEDEMA PERIPHERAL [None]
  - EYE SWELLING [None]
